FAERS Safety Report 5058260-2 (Version None)
Quarter: 2006Q2

REPORT INFORMATION
  Report Type: 
  Country: None (occurrence: None)
  Receive Date: 20060622
  Receipt Date: 20060328
  Transmission Date: 20061013
  Serious: Yes (Hospitalization)
  Sender: FDA-Public Use
  Company Number: US-JNJFOC-20060202455

PATIENT
  Age: 41 Year
  Sex: Female
  Weight: 74.8435 kg

DRUGS (5)
  1. DURAGESIC-100 [Suspect]
     Indication: PAIN
     Dosage: 50 UG/HR 1 IN 72 HOUR TRANSDERMAL
     Route: 062
     Dates: start: 20040101
  2. RESTORIL [Concomitant]
  3. ZANAFLEX [Concomitant]
  4. LORAZEPAM [Concomitant]
  5. NEURONTIN [Concomitant]

REACTIONS (1)
  - BACK PAIN [None]
